FAERS Safety Report 17124812 (Version 3)
Quarter: 2020Q1

REPORT INFORMATION
  Report Type: Spontaneous
  Country: LV (occurrence: LV)
  Receive Date: 20191206
  Receipt Date: 20200121
  Transmission Date: 20200409
  Serious: Yes (Hospitalization, Other)
  Sender: FDA-Public Use
  Company Number: LV-BAYER-2019-214124

PATIENT
  Age: 20 Year
  Sex: Female

DRUGS (1)
  1. NEXAVAR [Suspect]
     Active Substance: SORAFENIB
     Indication: HEPATOCELLULAR CARCINOMA
     Dosage: 400 MG, BID
     Route: 048
     Dates: start: 20181213, end: 20190423

REACTIONS (5)
  - Jaundice [None]
  - Hepatocellular carcinoma [None]
  - Metastases to liver [Not Recovered/Not Resolved]
  - Bile duct obstruction [None]
  - Ascites [None]

NARRATIVE: CASE EVENT DATE: 20190412
